FAERS Safety Report 8583234-4 (Version None)
Quarter: 2012Q3

REPORT INFORMATION
  Report Type: 
  Country: None (occurrence: None)
  Receive Date: 20120809
  Receipt Date: 20120802
  Transmission Date: 20120928
  Serious: Yes (Death)
  Sender: FDA-Public Use
  Company Number: IE-ACTELION-A-CH2012-67811

PATIENT
  Age: 40 Year
  Sex: Male

DRUGS (4)
  1. SILDENAFIL [Concomitant]
     Dosage: 20 MG, UNK
     Dates: start: 20090108, end: 20110510
  2. TRACLEER [Suspect]
     Indication: DIGITAL ULCER
     Dosage: 125 MG, UNK
     Route: 048
     Dates: start: 20090201, end: 20110510
  3. TRACLEER [Suspect]
     Dosage: 62.5 MG, BID
     Route: 048
     Dates: start: 20090101, end: 20090201
  4. MYCOPHENOLATE MOFETIL [Concomitant]
     Dosage: 500 MG, UNK
     Dates: start: 20090112, end: 20110510

REACTIONS (1)
  - DRUG ABUSE [None]
